FAERS Safety Report 19503824 (Version 1)
Quarter: 2021Q3

REPORT INFORMATION
  Report Type: Spontaneous
  Country: US (occurrence: US)
  Receive Date: 20210707
  Receipt Date: 20210707
  Transmission Date: 20211014
  Serious: No
  Sender: FDA-Public Use
  Company Number: US-PFIZER INC-2021709311

PATIENT
  Age: 65 Year
  Sex: Male
  Weight: 81.65 kg

DRUGS (1)
  1. CAVERJECT IMPULSE [Suspect]
     Active Substance: ALPROSTADIL
     Indication: EUPHORIC MOOD
     Dosage: 5 UG, AS NEEDED
     Dates: start: 2021

REACTIONS (1)
  - Syringe issue [Not Recovered/Not Resolved]

NARRATIVE: CASE EVENT DATE: 202105
